FAERS Safety Report 6099472-9 (Version None)
Quarter: 2009Q1

REPORT INFORMATION
  Report Type: 
  Country: None (occurrence: None)
  Receive Date: 20090303
  Receipt Date: 20090217
  Transmission Date: 20090719
  Serious: Yes (Death, Hospitalization, Other)
  Sender: FDA-Public Use
  Company Number: AT-BAYER-200912313GPV

PATIENT
  Age: 66 Year
  Sex: Male

DRUGS (4)
  1. MABCAMPATH [Suspect]
     Indication: CHRONIC LYMPHOCYTIC LEUKAEMIA
     Route: 065
     Dates: start: 20040705, end: 20040730
  2. FLUDARABINE PHOSPHATE [Suspect]
     Indication: CHRONIC LYMPHOCYTIC LEUKAEMIA
     Route: 048
     Dates: start: 20020501, end: 20021101
  3. FLUDARABINE PHOSPHATE [Suspect]
     Route: 065
     Dates: start: 20070716
  4. CYCLOPHOSPHAMIDE [Concomitant]
     Indication: CHRONIC LYMPHOCYTIC LEUKAEMIA
     Route: 065
     Dates: start: 20070716

REACTIONS (4)
  - ACUTE MYELOID LEUKAEMIA [None]
  - CHRONIC LYMPHOCYTIC LEUKAEMIA [None]
  - CYTOMEGALOVIRUS INFECTION [None]
  - PANCYTOPENIA [None]
